FAERS Safety Report 25856321 (Version 1)
Quarter: 2025Q3

REPORT INFORMATION
  Report Type: 
  Country: CN (occurrence: CN)
  Receive Date: 20250928
  Receipt Date: 20250928
  Transmission Date: 20251021
  Serious: Yes (Hospitalization)
  Sender: JIANGSU HANSOH PHARMACEUTICAL GROUP CO., LTD.
  Company Number: CN-Hansoh-20252190017459

PATIENT
  Age: 77 Year
  Sex: Female
  Weight: 44.5 kg

DRUGS (3)
  1. SINTILIMAB [Suspect]
     Active Substance: SINTILIMAB
     Indication: Lung neoplasm malignant
     Dosage: 200MG,QD
     Route: 041
     Dates: start: 20250707, end: 20250707
  2. PEMETREXED DISODIUM [Suspect]
     Active Substance: PEMETREXED DISODIUM
     Indication: Lung neoplasm malignant
     Dosage: 0.7G,QD
     Route: 041
     Dates: start: 20250707, end: 20250707
  3. BEVACIZUMAB [Suspect]
     Active Substance: BEVACIZUMAB
     Indication: Lung neoplasm malignant
     Dosage: 0.4G,QD
     Route: 041
     Dates: start: 20250707, end: 20250707

REACTIONS (4)
  - Myelosuppression [Recovering/Resolving]
  - Decreased immune responsiveness [Unknown]
  - Dizziness [Unknown]
  - Pyrexia [Unknown]

NARRATIVE: CASE EVENT DATE: 20250717
